FAERS Safety Report 6564913-7 (Version None)
Quarter: 2010Q1

REPORT INFORMATION
  Report Type: 
  Country: None (occurrence: None)
  Receive Date: 20100128
  Receipt Date: 20100113
  Transmission Date: 20100710
  Serious: No
  Sender: FDA-Public Use
  Company Number: 2010-00039

PATIENT
  Age: 52 Year
  Sex: Female
  Weight: 51.2565 kg

DRUGS (1)
  1. COLD REMEDY RAPIDMELTS WITH VITAMIN C [Suspect]
     Dosage: 2-3 TIMES/DAY FOR 4 DAYS
     Dates: start: 20100109, end: 20100113

REACTIONS (2)
  - AGEUSIA [None]
  - ANOSMIA [None]
